FAERS Safety Report 18259930 (Version 1)
Quarter: 2020Q3

REPORT INFORMATION
  Report Type: Spontaneous
  Country: JP (occurrence: JP)
  Receive Date: 20200912
  Receipt Date: 20200912
  Transmission Date: 20201103
  Serious: Yes (Other)
  Sender: FDA-Public Use
  Company Number: JP-SEATTLE GENETICS-2020SGN04080

PATIENT
  Age: 6 Decade
  Sex: Male

DRUGS (2)
  1. ADCETRIS [Suspect]
     Active Substance: BRENTUXIMAB VEDOTIN
     Indication: HODGKIN^S DISEASE
     Dosage: 1.2 MILLIGRAM/KILOGRAM
     Route: 041
     Dates: start: 20200219
  2. ADCETRIS [Suspect]
     Active Substance: BRENTUXIMAB VEDOTIN
     Dosage: 0.9 MILLIGRAM/KILOGRAM
     Route: 041
     Dates: start: 20200522

REACTIONS (4)
  - Hodgkin^s disease [Unknown]
  - Neutropenia [Unknown]
  - Neuropathy peripheral [Recovered/Resolved]
  - Disease progression [Unknown]

NARRATIVE: CASE EVENT DATE: 20200522
